FAERS Safety Report 12105303 (Version 1)
Quarter: 2016Q1

REPORT INFORMATION
  Report Type: Spontaneous
  Country: US (occurrence: US)
  Receive Date: 20160223
  Receipt Date: 20160223
  Transmission Date: 20160526
  Serious: No
  Sender: FDA-Public Use
  Company Number: US-BAUSCH-BL-2015-025496

PATIENT
  Age: 57 Year
  Sex: Male
  Weight: 90.07 kg

DRUGS (1)
  1. VISUDYNE [Suspect]
     Active Substance: VERTEPORFIN
     Indication: CHORIORETINOPATHY
     Route: 042

REACTIONS (2)
  - Renal impairment [Unknown]
  - Visual acuity reduced [Unknown]
